FAERS Safety Report 12086306 (Version 1)
Quarter: 2016Q1

REPORT INFORMATION
  Report Type: Spontaneous
  Country: US (occurrence: US)
  Receive Date: 20160217
  Receipt Date: 20160217
  Transmission Date: 20160526
  Serious: No
  Sender: FDA-Public Use
  Company Number: US-ALLERGAN-1511283US

PATIENT
  Sex: Female
  Weight: 47.62 kg

DRUGS (1)
  1. RESTASIS [Suspect]
     Active Substance: CYCLOSPORINE
     Indication: DRY EYE
     Dosage: UNK
     Route: 047
     Dates: start: 200807

REACTIONS (3)
  - Incorrect product storage [Unknown]
  - Eye irritation [Unknown]
  - Wrong technique in product usage process [Unknown]
